FAERS Safety Report 20136516 (Version 1)
Quarter: 2021Q4

REPORT INFORMATION
  Report Type: Spontaneous
  Country: EG (occurrence: EG)
  Receive Date: 20211201
  Receipt Date: 20211201
  Transmission Date: 20220303
  Serious: Yes (Other)
  Sender: FDA-Public Use
  Company Number: EG-NOVARTISPH-NVSC2021EG271319

PATIENT
  Age: 73 Year
  Sex: Male

DRUGS (13)
  1. ENTRESTO [Suspect]
     Active Substance: SACUBITRIL\VALSARTAN
     Indication: Cardiac failure
     Dosage: 50 MG, BID
     Route: 048
     Dates: start: 20210830
  2. CONTROLOC [Concomitant]
     Active Substance: PANTOPRAZOLE SODIUM
     Indication: Abdominal discomfort
     Dosage: 40 MG, QD
     Route: 048
     Dates: start: 20210815
  3. ASPIRIN [Concomitant]
     Active Substance: ASPIRIN
     Indication: Anticoagulant therapy
     Dosage: 75 MG, QD
     Route: 048
     Dates: start: 2018
  4. PLAVIX [Concomitant]
     Active Substance: CLOPIDOGREL BISULFATE
     Indication: Cardiac disorder
     Dosage: 75 MG, QD
     Route: 048
     Dates: start: 2011
  5. LIPITOR [Concomitant]
     Active Substance: ATORVASTATIN CALCIUM
     Indication: Product used for unknown indication
     Dosage: 40 MG, QD
     Route: 048
     Dates: start: 20210815
  6. LANOXIN [Concomitant]
     Active Substance: DIGOXIN
     Indication: Polyuria
     Dosage: 25 MG, QD
     Route: 048
     Dates: start: 20210815
  7. SPECTONE [Concomitant]
     Indication: Hypertension
     Dosage: 0.5 DF, QD
     Route: 048
     Dates: start: 20210815
  8. BISOPROLOL FUMARATE [Concomitant]
     Active Substance: BISOPROLOL FUMARATE
     Indication: Cardiac disorder
     Dosage: 0.5 DF, QD
     Route: 048
     Dates: start: 20210815
  9. TRENTAL [Concomitant]
     Active Substance: PENTOXIFYLLINE
     Indication: Product used for unknown indication
     Dosage: 400 MG, BID
     Route: 048
     Dates: start: 20210815
  10. EXAMIDE [Concomitant]
     Indication: Polyuria
     Dosage: 10 MG, QD
     Route: 048
     Dates: start: 20210815
  11. .ALPHA.-LIPOIC ACID [Concomitant]
     Active Substance: .ALPHA.-LIPOIC ACID
     Indication: Hypovitaminosis
     Dosage: 300 MG, BID
     Route: 048
     Dates: start: 20210815
  12. LANTUS [Concomitant]
     Active Substance: INSULIN GLARGINE
     Indication: Diabetes mellitus
     Dosage: 1 DF, QD (24 UNITS ONCE DAILY)
     Route: 058
     Dates: start: 20210815
  13. APIDRA [Concomitant]
     Active Substance: INSULIN GLULISINE
     Indication: Diabetes mellitus
     Dosage: 1 DF, QD ( 10 UNITS 3 TIMES DAILY)
     Route: 058
     Dates: start: 20210815

REACTIONS (1)
  - Diabetes mellitus inadequate control [Not Recovered/Not Resolved]

NARRATIVE: CASE EVENT DATE: 20211015
